FAERS Safety Report 7581700-1 (Version None)
Quarter: 2011Q2

REPORT INFORMATION
  Report Type: 
  Country: None (occurrence: None)
  Receive Date: 20110629
  Receipt Date: 20110621
  Transmission Date: 20111010
  Serious: Yes (Other)
  Sender: FDA-Public Use
  Company Number: US-PFIZER INC-2010126178

PATIENT
  Sex: Female

DRUGS (4)
  1. VIAGRA [Suspect]
     Indication: LOSS OF LIBIDO
  2. XYREM [Suspect]
     Dosage: UNK
  3. XANAX [Suspect]
     Indication: TINNITUS
     Dosage: 0.5 MG, 3X/DAY
     Dates: start: 20100501, end: 20100101
  4. VIAGRA [Suspect]
     Indication: ERECTILE DYSFUNCTION
     Dosage: UNK
     Dates: start: 20100101

REACTIONS (7)
  - DRUG INEFFECTIVE [None]
  - DEPRESSION [None]
  - LIBIDO DECREASED [None]
  - BRAIN NEOPLASM [None]
  - VERTIGO [None]
  - TINNITUS [None]
  - ALOPECIA [None]
